FAERS Safety Report 5477802-6 (Version None)
Quarter: 2007Q4

REPORT INFORMATION
  Report Type: 
  Country: None (occurrence: None)
  Receive Date: 20071004
  Receipt Date: 20071002
  Transmission Date: 20080405
  Serious: Yes (Death, Hospitalization)
  Sender: FDA-Public Use
  Company Number: ES-ASTRAZENECA-2007AC01872

PATIENT
  Age: 61 Year
  Sex: Male

DRUGS (3)
  1. CASODEX [Suspect]
     Indication: PROSTATE CANCER
     Route: 048
     Dates: start: 20070301, end: 20070619
  2. OMEPRAZOLE [Suspect]
     Dates: start: 20070101
  3. RADIOTHERAPY [Concomitant]

REACTIONS (2)
  - HEPATIC CIRRHOSIS [None]
  - HEPATITIS TOXIC [None]
